FAERS Safety Report 21768486 (Version 2)
Quarter: 2023Q2

REPORT INFORMATION
  Report Type: Spontaneous
  Country: ES (occurrence: ES)
  Receive Date: 20221222
  Receipt Date: 20230620
  Transmission Date: 20230721
  Serious: Yes (Hospitalization, Other)
  Sender: FDA-Public Use
  Company Number: ES-Accord-267167

PATIENT
  Age: 67 Year
  Sex: Male
  Weight: 70 kg

DRUGS (26)
  1. CARBOPLATIN [Suspect]
     Active Substance: CARBOPLATIN
     Indication: Product used for unknown indication
     Dosage: 5 AUC, 1Q3W
     Dates: start: 20220124, end: 20220214
  2. CARBOPLATIN [Suspect]
     Active Substance: CARBOPLATIN
     Dosage: 4 AUC, 1Q3W
     Dates: start: 20220314, end: 20220404
  3. CARBOPLATIN [Suspect]
     Active Substance: CARBOPLATIN
     Dosage: 4 AUC, 1Q3W
     Dates: start: 20220502, end: 20220502
  4. FLUOROURACIL [Suspect]
     Active Substance: FLUOROURACIL
     Indication: Product used for unknown indication
     Dosage: QD
     Dates: start: 20220214, end: 20220218
  5. FLUOROURACIL [Suspect]
     Active Substance: FLUOROURACIL
     Dosage: QD
     Dates: start: 20220502, end: 20220506
  6. FLUOROURACIL [Suspect]
     Active Substance: FLUOROURACIL
     Dosage: QD
     Dates: start: 20220314, end: 20220318
  7. FLUOROURACIL [Suspect]
     Active Substance: FLUOROURACIL
     Dosage: QD
     Dates: start: 20220124, end: 20220127
  8. FLUOROURACIL [Suspect]
     Active Substance: FLUOROURACIL
     Dosage: QD
     Dates: start: 20220404, end: 20220408
  9. PEMBROLIZUMAB [Suspect]
     Active Substance: PEMBROLIZUMAB
     Indication: Product used for unknown indication
     Dosage: 1Q3W
     Dates: start: 20220124, end: 20220502
  10. FILGRASTIM [Concomitant]
     Active Substance: FILGRASTIM
     Indication: Product used for unknown indication
     Dates: start: 20220608, end: 20220611
  11. ESOMEPRAZOLE [Concomitant]
     Active Substance: ESOMEPRAZOLE
     Dates: start: 20220705, end: 20220706
  12. POLYETHYLENE GLYCOL [Concomitant]
     Active Substance: POLYETHYLENE GLYCOL
     Indication: Product used for unknown indication
     Dates: start: 20220606, end: 20220706
  13. EFFERALGAN [Concomitant]
     Active Substance: ACETAMINOPHEN
     Indication: Product used for unknown indication
     Dates: start: 202110, end: 20220706
  14. SULFAMETHOXAZOLE\TRIMETHOPRIM [Concomitant]
     Active Substance: SULFAMETHOXAZOLE\TRIMETHOPRIM
     Indication: Product used for unknown indication
     Dates: start: 20220706, end: 20220929
  15. OMEPRAZOLE [Concomitant]
     Active Substance: OMEPRAZOLE
     Indication: Product used for unknown indication
     Dates: start: 202110, end: 20220608
  16. ACYCLOVIR [Concomitant]
     Active Substance: ACYCLOVIR
     Indication: Product used for unknown indication
     Dates: start: 20220621, end: 20220816
  17. ASCORBIC ACID\POTASSIUM BICARBONATE [Concomitant]
     Active Substance: ASCORBIC ACID\POTASSIUM BICARBONATE
     Indication: Product used for unknown indication
     Dates: start: 20220706
  18. LANSOPRAZOLE [Concomitant]
     Active Substance: LANSOPRAZOLE
     Indication: Product used for unknown indication
     Dates: start: 20220706
  19. PANTOPRAZOLE [Concomitant]
     Active Substance: PANTOPRAZOLE
     Indication: Product used for unknown indication
     Dates: start: 20220608, end: 20220705
  20. MORPHINE [Concomitant]
     Active Substance: MORPHINE
     Indication: Product used for unknown indication
     Dates: start: 20220605, end: 20220605
  21. DEXKETOPROFEN [Concomitant]
     Active Substance: DEXKETOPROFEN
     Indication: Product used for unknown indication
     Dates: start: 20220619, end: 20220623
  22. MAGNESIUM CHLORIDE [Concomitant]
     Active Substance: MAGNESIUM CHLORIDE
     Indication: Product used for unknown indication
     Dates: start: 20220706
  23. DEXAMETHASONE [Concomitant]
     Active Substance: DEXAMETHASONE
     Indication: Product used for unknown indication
     Dates: start: 20220124
  24. FENTANYL [Concomitant]
     Active Substance: FENTANYL
     Indication: Product used for unknown indication
     Dates: start: 20220103
  25. IBUPROFEN [Concomitant]
     Active Substance: IBUPROFEN
     Indication: Product used for unknown indication
     Dates: start: 202110
  26. MORPHINE SULFATE [Concomitant]
     Active Substance: MORPHINE SULFATE
     Indication: Product used for unknown indication
     Dates: start: 20220103

REACTIONS (2)
  - Haemophagocytic lymphohistiocytosis [Not Recovered/Not Resolved]
  - Febrile neutropenia [Recovered/Resolved]

NARRATIVE: CASE EVENT DATE: 20220606
